FAERS Safety Report 11080072 (Version 1)
Quarter: 2015Q2

REPORT INFORMATION
  Report Type: Report from Study
  Country: JP (occurrence: JP)
  Receive Date: 20150430
  Receipt Date: 20150430
  Transmission Date: 20150821
  Serious: Yes (Hospitalization)
  Sender: FDA-Public Use
  Company Number: JP-EISAI MEDICAL RESEARCH-EC-2015-006429

PATIENT
  Age: 14 Year
  Sex: Female
  Weight: 32 kg

DRUGS (10)
  1. INOVELON [Suspect]
     Active Substance: RUFINAMIDE
     Route: 048
     Dates: start: 20141028, end: 20141208
  2. INOVELON [Suspect]
     Active Substance: RUFINAMIDE
     Route: 048
     Dates: start: 20141209, end: 20150127
  3. SELENICA-R [Concomitant]
     Active Substance: SELENIUM
     Route: 048
     Dates: start: 20140708, end: 20150120
  4. SELENICA-R [Concomitant]
     Active Substance: SELENIUM
     Route: 048
     Dates: start: 20140325, end: 20140707
  5. LANDSEN [Concomitant]
     Active Substance: CLONAZEPAM
  6. INOVELON [Suspect]
     Active Substance: RUFINAMIDE
     Indication: LENNOX-GASTAUT SYNDROME
     Route: 048
     Dates: start: 20130611, end: 20140811
  7. INOVELON [Suspect]
     Active Substance: RUFINAMIDE
     Route: 048
     Dates: start: 20140812, end: 20140915
  8. L-CARTIN [Concomitant]
     Active Substance: LEVOCARNITINE HYDROCHLORIDE
  9. INOVELON [Suspect]
     Active Substance: RUFINAMIDE
     Route: 048
     Dates: start: 20140916, end: 20141027
  10. SELENICA-R [Concomitant]
     Active Substance: SELENIUM
     Indication: LENNOX-GASTAUT SYNDROME
     Route: 048
     Dates: end: 20140324

REACTIONS (1)
  - Status epilepticus [Recovering/Resolving]

NARRATIVE: CASE EVENT DATE: 20150128
